FAERS Safety Report 16046339 (Version 2)
Quarter: 2019Q1

REPORT INFORMATION
  Report Type: Spontaneous
  Country: CI (occurrence: CI)
  Receive Date: 20190307
  Receipt Date: 20190312
  Transmission Date: 20190418
  Serious: Yes (Death, Life-Threatening, Hospitalization, Other)
  Sender: FDA-Public Use
  Company Number: CI-GLAXOSMITHKLINE-CI2019040797

PATIENT
  Age: 57 Year
  Sex: Female

DRUGS (1)
  1. DICLOFENAC [Suspect]
     Active Substance: DICLOFENAC
     Indication: PRODUCT USED FOR UNKNOWN INDICATION
     Dosage: UNK
     Route: 048

REACTIONS (4)
  - Toxic epidermal necrolysis [Fatal]
  - Mucosal erosion [Unknown]
  - Skin exfoliation [Unknown]
  - Stevens-Johnson syndrome [Unknown]
